FAERS Safety Report 6293143-1 (Version None)
Quarter: 2009Q3

REPORT INFORMATION
  Report Type: 
  Country: None (occurrence: None)
  Receive Date: 20090731
  Receipt Date: 20090728
  Transmission Date: 20100115
  Serious: Yes (Life-Threatening, Hospitalization)
  Sender: FDA-Public Use
  Company Number: ZA-ABBOTT-09P-143-0587664-00

PATIENT
  Age: 62 Year
  Sex: Male

DRUGS (2)
  1. KALETRA [Suspect]
     Indication: HIV INFECTION
     Dosage: 400/100 MG
     Route: 048
     Dates: start: 20080417
  2. COMBIVIR [Concomitant]
     Indication: HIV INFECTION
     Dates: start: 20050113, end: 20090313

REACTIONS (1)
  - MYOCARDIAL INFARCTION [None]
